FAERS Safety Report 14840321 (Version 1)
Quarter: 2018Q2

REPORT INFORMATION
  Report Type: Spontaneous
  Country: KZ (occurrence: KZ)
  Receive Date: 20180503
  Receipt Date: 20180503
  Transmission Date: 20180711
  Serious: Yes (Death, Life-Threatening, Other)
  Sender: FDA-Public Use
  Company Number: KZ-009507513-1804KAZ011571

PATIENT
  Age: 61 Year
  Sex: Female
  Weight: 54.01 kg

DRUGS (6)
  1. IMIPENEM AND CILASTATIN [Suspect]
     Active Substance: CILASTATIN SODIUM\IMIPENEM
     Indication: TUBERCULOSIS
     Dosage: 2000 MG, QD
     Route: 065
     Dates: start: 20171226, end: 20180222
  2. LINEZOLID. [Suspect]
     Active Substance: LINEZOLID
     Indication: TUBERCULOSIS
     Dosage: 600 MG, QD
     Route: 065
     Dates: start: 20171226, end: 20180222
  3. BEDAQUILINE [Suspect]
     Active Substance: BEDAQUILINE
     Indication: TUBERCULOSIS
     Dosage: 200 MG, BID
     Route: 065
     Dates: start: 20171226, end: 20180222
  4. CLOFAZIMINE [Suspect]
     Active Substance: CLOFAZIMINE
     Indication: TUBERCULOSIS
     Dosage: 200 MG, QD
     Dates: start: 20171226, end: 20180222
  5. AMOXICILLIN. [Concomitant]
     Active Substance: AMOXICILLIN
     Dosage: UNK
     Dates: start: 20171226
  6. DELAMANID [Suspect]
     Active Substance: DELAMANID
     Indication: TUBERCULOSIS
     Dosage: 200 MG, QD
     Route: 065
     Dates: start: 20171226, end: 20180222

REACTIONS (3)
  - Pneumothorax [Unknown]
  - Cardiopulmonary failure [Fatal]
  - Hepatitis toxic [Fatal]

NARRATIVE: CASE EVENT DATE: 20180221
